FAERS Safety Report 24834643 (Version 9)
Quarter: 2025Q4

REPORT INFORMATION
  Report Type: Report from Study
  Country: EU (occurrence: EU)
  Receive Date: 20250113
  Receipt Date: 20251202
  Transmission Date: 20260118
  Serious: Yes (Death, Life-Threatening, Hospitalization, Disabling, Other)
  Sender: NOVARTIS
  Company Number: EU-002147023-NVSC2025IE003535

PATIENT
  Age: 18 Month
  Sex: Male
  Weight: 8 kg

DRUGS (1)
  1. ZOLGENSMA [Suspect]
     Active Substance: ONASEMNOGENE ABEPARVOVEC-XIOI
     Indication: Spinal muscular atrophy
     Dosage: UNK, ONCE/SINGLE
     Route: 042
     Dates: start: 20240410, end: 20240410

REACTIONS (7)
  - Respiratory failure [Fatal]
  - General physical health deterioration [Fatal]
  - Respiratory arrest [Recovered/Resolved]
  - Dependence on respirator [Not Recovered/Not Resolved]
  - Respiratory disorder [Unknown]
  - Motor dysfunction [Unknown]
  - Therapy non-responder [Unknown]

NARRATIVE: CASE EVENT DATE: 20240428
